FAERS Safety Report 9836674 (Version 1)
Quarter: 2013Q4

REPORT INFORMATION
  Report Type: Spontaneous
  Country: US (occurrence: None)
  Receive Date: 20131127
  Receipt Date: 20131127
  Transmission Date: 20140711
  Serious: Yes (Other)
  Sender: FDA-Public Use
  Company Number: 223661

PATIENT
  Sex: Female

DRUGS (1)
  1. PICATO [Suspect]
     Indication: PRECANCEROUS SKIN LESION
     Dosage: (1 D), RIGHT TEMPLE
     Dates: start: 20130820, end: 20130821

REACTIONS (8)
  - Application site pain [None]
  - Application site pain [None]
  - Application site swelling [None]
  - Application site exfoliation [None]
  - Application site exfoliation [None]
  - Application site discharge [None]
  - Eye swelling [None]
  - Application site erythema [None]
